FAERS Safety Report 5498697-0 (Version None)
Quarter: 2007Q4

REPORT INFORMATION
  Report Type: 
  Country: None (occurrence: None)
  Receive Date: 20071026
  Receipt Date: 20071017
  Transmission Date: 20080405
  Serious: Yes (Hospitalization, Other)
  Sender: FDA-Public Use
  Company Number: DE-NOVOPROD-267658

PATIENT
  Sex: Female
  Weight: 73 kg

DRUGS (4)
  1. NORDITROPIN [Suspect]
     Indication: GROWTH HORMONE DEFICIENCY
     Dosage: .2 MG, QD
     Route: 058
     Dates: start: 20061201, end: 20070228
  2. NORDITROPIN [Suspect]
     Dosage: .4 MG, QD
     Route: 058
     Dates: start: 20070301, end: 20070918
  3. LEVOTHYROXINE SODIUM [Concomitant]
     Dosage: 100 UG, QD
     Route: 048
     Dates: start: 19930101
  4. SAB SIMPLEX                        /00159501/ [Concomitant]
     Dosage: 20 ML, QD
     Route: 048
     Dates: start: 19930101

REACTIONS (1)
  - EPILEPSY [None]
